FAERS Safety Report 6687892-0 (Version None)
Quarter: 2010Q2

REPORT INFORMATION
  Report Type: 
  Country: None (occurrence: None)
  Receive Date: 20100420
  Receipt Date: 20100408
  Transmission Date: 20101027
  Serious: Yes (Other)
  Sender: FDA-Public Use
  Company Number: AU-WYE-H14494510

PATIENT
  Age: 13 Year
  Sex: Female
  Weight: 45 kg

DRUGS (2)
  1. ADVIL [Suspect]
     Indication: TENDONITIS
     Route: 048
  2. PARACETAMOL [Concomitant]
     Indication: TENDONITIS
     Dosage: 1 GRAM 4 TIMES PER DAY AS NEEDED
     Route: 048

REACTIONS (4)
  - ABDOMINAL DISCOMFORT [None]
  - ARRHYTHMIA [None]
  - FEELING HOT [None]
  - HYPERHIDROSIS [None]
